FAERS Safety Report 7457356-5 (Version None)
Quarter: 2011Q2

REPORT INFORMATION
  Report Type: 
  Country: None (occurrence: None)
  Receive Date: 20110426
  Receipt Date: 20110413
  Transmission Date: 20111010
  Serious: Yes (Other)
  Sender: FDA-Public Use
  Company Number: US-2011-10118

PATIENT
  Age: 42 Year
  Sex: Male

DRUGS (5)
  1. OPC-4106T (TOLVAPTAN) TABLET, 30MG MILLIGRAM(S) [Suspect]
     Indication: CONGENITAL CYSTIC KIDNEY DISEASE
     Dosage: 60 MG MILLIGRAM(S), DAILY DOSE, ORAL, OPC-41061 REGIMEN #2 90 MG MILLIGRAM(S), DAILY DOSE
     Route: 048
     Dates: start: 20101030, end: 20101108
  2. OPC-4106T (TOLVAPTAN) TABLET, 30MG MILLIGRAM(S) [Suspect]
     Indication: CONGENITAL CYSTIC KIDNEY DISEASE
     Dosage: 60 MG MILLIGRAM(S), DAILY DOSE, ORAL, OPC-41061 REGIMEN #2 90 MG MILLIGRAM(S), DAILY DOSE
     Route: 048
     Dates: start: 20100624, end: 20100630
  3. OPC-4106T (TOLVAPTAN) TABLET, 30MG MILLIGRAM(S) [Suspect]
     Indication: CONGENITAL CYSTIC KIDNEY DISEASE
     Dosage: 60 MG MILLIGRAM(S), DAILY DOSE, ORAL, OPC-41061 REGIMEN #2 90 MG MILLIGRAM(S), DAILY DOSE
     Route: 048
     Dates: start: 20101109
  4. OPC-4106T (TOLVAPTAN) TABLET, 30MG MILLIGRAM(S) [Suspect]
     Indication: CONGENITAL CYSTIC KIDNEY DISEASE
     Dosage: 60 MG MILLIGRAM(S), DAILY DOSE, ORAL, OPC-41061 REGIMEN #2 90 MG MILLIGRAM(S), DAILY DOSE
     Route: 048
     Dates: start: 20100617, end: 20100623
  5. ALBUTEROL SULFATE AUTOHALER [Concomitant]

REACTIONS (1)
  - DRUG INTERACTION [None]
